FAERS Safety Report 9397006 (Version 1)
Quarter: 2013Q3

REPORT INFORMATION
  Report Type: Spontaneous
  Country: US (occurrence: None)
  Receive Date: 20130710
  Receipt Date: 20130710
  Transmission Date: 20140515
  Serious: Yes (Life-Threatening)
  Sender: FDA-Public Use
  Company Number: None

PATIENT
  Age: 13 Year
  Sex: Female
  Weight: 73.1 kg

DRUGS (3)
  1. ACETAMINOPHEN WITH CODEINE [Suspect]
     Route: 048
  2. HYDROXYUREA [Concomitant]
  3. IBUPROFEN [Concomitant]

REACTIONS (2)
  - Depressed level of consciousness [None]
  - Hypersomnia [None]
